FAERS Safety Report 14325875 (Version 3)
Quarter: 2018Q1

REPORT INFORMATION
  Report Type: Report from Study
  Country: DE (occurrence: DE)
  Receive Date: 20171226
  Receipt Date: 20180214
  Transmission Date: 20180509
  Serious: Yes (Death, Hospitalization, Other)
  Sender: FDA-Public Use
  Company Number: DE-IPSEN BIOPHARMACEUTICALS, INC.-2017-15948

PATIENT
  Age: 67 Year
  Sex: Female
  Weight: 95 kg

DRUGS (26)
  1. AVASTIN [Suspect]
     Active Substance: BEVACIZUMAB
     Indication: COLORECTAL CANCER METASTATIC
     Route: 042
     Dates: start: 20130211, end: 2013
  2. 5-FU [Suspect]
     Active Substance: FLUOROURACIL
     Indication: COLORECTAL CANCER
     Dosage: NOT REPORTED
     Dates: end: 2013
  3. FOLINIC ACID [Suspect]
     Active Substance: LEUCOVORIN
     Indication: COLORECTAL CANCER
     Dosage: NOT REPORTED
     Route: 042
     Dates: start: 20130211, end: 20130311
  4. OPIPRAMOL [Concomitant]
     Active Substance: OPIPRAMOL
  5. PEGYLATED LIPOSOMAL IRINOTECAN [Suspect]
     Active Substance: IRINOTECAN HYDROCHLORIDE
     Dosage: NOT REPORTED
     Route: 042
     Dates: start: 20131106
  6. FOLINIC ACID [Suspect]
     Active Substance: LEUCOVORIN
     Route: 042
     Dates: start: 20131106
  7. METOPROLOL SUCCINATE. [Concomitant]
     Active Substance: METOPROLOL SUCCINATE
  8. AVASTIN [Suspect]
     Active Substance: BEVACIZUMAB
     Dosage: NOT REPORTED
     Route: 042
     Dates: start: 20130715
  9. METOCLOPRAMID [Concomitant]
     Active Substance: METOCLOPRAMIDE
  10. PHENPROCOUMON [Concomitant]
     Active Substance: PHENPROCOUMON
  11. PEGYLATED LIPOSOMAL IRINOTECAN [Suspect]
     Active Substance: IRINOTECAN HYDROCHLORIDE
     Indication: OFF LABEL USE
     Route: 042
     Dates: start: 20130325, end: 20130325
  12. PEGYLATED LIPOSOMAL IRINOTECAN [Suspect]
     Active Substance: IRINOTECAN HYDROCHLORIDE
     Route: 042
     Dates: start: 20130408, end: 20130701
  13. 5-FU [Suspect]
     Active Substance: FLUOROURACIL
     Route: 040
     Dates: start: 20131106
  14. FOLINIC ACID [Suspect]
     Active Substance: LEUCOVORIN
     Dosage: NOT REPORTED
     Route: 042
     Dates: start: 20130325, end: 20130715
  15. FLECAINIDE [Concomitant]
     Active Substance: FLECAINIDE
  16. FUROSEMID [Concomitant]
     Active Substance: FUROSEMIDE
  17. PANTOZOL [Concomitant]
     Active Substance: PANTOPRAZOLE SODIUM
  18. MARCUMAR [Concomitant]
     Active Substance: PHENPROCOUMON
  19. PEGYLATED LIPOSOMAL IRINOTECAN [Suspect]
     Active Substance: IRINOTECAN HYDROCHLORIDE
     Route: 042
     Dates: start: 20130715, end: 20130715
  20. 5-FU [Suspect]
     Active Substance: FLUOROURACIL
     Route: 041
     Dates: start: 20130211, end: 20130313
  21. 5-FU [Suspect]
     Active Substance: FLUOROURACIL
     Route: 041
     Dates: start: 20131106, end: 20131108
  22. 5-FU [Suspect]
     Active Substance: FLUOROURACIL
     Route: 041
     Dates: start: 20130325, end: 2013
  23. 5-FU [Suspect]
     Active Substance: FLUOROURACIL
     Route: 040
     Dates: start: 20130323, end: 20130715
  24. NOVAMINSULFON [Concomitant]
     Active Substance: METAMIZOLE
  25. PEGYLATED LIPOSOMAL IRINOTECAN [Suspect]
     Active Substance: IRINOTECAN HYDROCHLORIDE
     Indication: COLORECTAL CANCER METASTATIC
     Dosage: NOT REPORTED
     Route: 042
     Dates: start: 20130211, end: 20130311
  26. 5-FU [Suspect]
     Active Substance: FLUOROURACIL
     Route: 040
     Dates: start: 20130211, end: 20130311

REACTIONS (9)
  - Infection [Fatal]
  - Off label use [Unknown]
  - Abdominal pain upper [Fatal]
  - Abdominal pain upper [Recovered/Resolved]
  - Malignant neoplasm progression [Fatal]
  - General physical health deterioration [Fatal]
  - Pneumonia [Fatal]
  - Laboratory test abnormal [Fatal]
  - General physical health deterioration [Recovered/Resolved]

NARRATIVE: CASE EVENT DATE: 2013
